FAERS Safety Report 10886983 (Version 1)
Quarter: 2015Q1

REPORT INFORMATION
  Report Type: Spontaneous
  Country: US (occurrence: US)
  Receive Date: 20150304
  Receipt Date: 20150304
  Transmission Date: 20150721
  Serious: No
  Sender: FDA-Public Use
  Company Number: US-PFIZER INC-2015075138

PATIENT
  Age: 63 Year
  Sex: Female
  Weight: 86 kg

DRUGS (3)
  1. HYDROCODONE [Concomitant]
     Active Substance: HYDROCODONE
     Indication: PAIN
     Dosage: 1 DF (7.5/325MG), 4X/DAY AS NEEDED
     Route: 048
     Dates: start: 2014
  2. CLONAZEPAM. [Concomitant]
     Active Substance: CLONAZEPAM
     Indication: THINKING ABNORMAL
     Dosage: 1 MG, 1X/DAY AT BEDTIME AS NEEDED
     Route: 048
     Dates: start: 2012
  3. AROMASIN [Suspect]
     Active Substance: EXEMESTANE
     Indication: BREAST CANCER METASTATIC
     Dosage: 25 MG, 1X/DAY
     Route: 048
     Dates: start: 201411, end: 20150224

REACTIONS (3)
  - Disease progression [Not Recovered/Not Resolved]
  - Urinary incontinence [Unknown]
  - Breast cancer metastatic [Not Recovered/Not Resolved]
